FAERS Safety Report 10185279 (Version 1)
Quarter: 2014Q2

REPORT INFORMATION
  Report Type: Spontaneous
  Country: US (occurrence: US)
  Receive Date: 20140521
  Receipt Date: 20140521
  Transmission Date: 20141212
  Serious: No
  Sender: FDA-Public Use
  Company Number: US-PFIZER INC-2014137263

PATIENT
  Age: 58 Year
  Sex: Female

DRUGS (7)
  1. ZOLOFT [Suspect]
     Dosage: UNK
  2. TERRAMYCIN [Suspect]
     Dosage: UNK
  3. BIAXIN [Suspect]
     Dosage: UNK
  4. DONNATAL [Suspect]
     Dosage: UNK
  5. SERZONE [Suspect]
     Dosage: UNK
  6. PROPULSID [Suspect]
     Dosage: UNK
  7. AMITRIPTYLINE [Suspect]
     Dosage: UNK

REACTIONS (1)
  - Drug hypersensitivity [Unknown]
